FAERS Safety Report 20650895 (Version 4)
Quarter: 2022Q2

REPORT INFORMATION
  Report Type: Report from Study
  Country: AU (occurrence: None)
  Receive Date: 20220329
  Receipt Date: 20220521
  Transmission Date: 20220720
  Serious: Yes (Hospitalization)
  Sender: FDA-Public Use
  Company Number: AU-ROCHE-3059062

PATIENT
  Age: 70 Year
  Sex: Female
  Weight: 85.4 kg

DRUGS (18)
  1. COBIMETINIB [Suspect]
     Active Substance: COBIMETINIB
     Indication: Malignant melanoma
     Dosage: ON 18-JAN-2022 REDUCED TO 40 MG
     Route: 048
     Dates: start: 20211221, end: 20220117
  2. COBIMETINIB [Suspect]
     Active Substance: COBIMETINIB
     Route: 048
     Dates: start: 20220118, end: 20220206
  3. INVESTIGATIONAL PRODUCT [Suspect]
     Active Substance: INVESTIGATIONAL PRODUCT
     Indication: Malignant melanoma
     Route: 048
     Dates: start: 20211221, end: 20220117
  4. INVESTIGATIONAL PRODUCT [Suspect]
     Active Substance: INVESTIGATIONAL PRODUCT
     Route: 048
     Dates: start: 20220118, end: 20220205
  5. METFORMIN [Concomitant]
     Active Substance: METFORMIN HYDROCHLORIDE
     Dates: end: 20220310
  6. LINAGLIPTIN [Concomitant]
     Active Substance: LINAGLIPTIN
  7. METOCLOPRAMIDE [Concomitant]
     Active Substance: METOCLOPRAMIDE
     Dates: start: 20220104
  8. ONDANSETRON [Concomitant]
     Active Substance: ONDANSETRON
     Dates: start: 20220104
  9. LOPERAMIDE [Concomitant]
     Active Substance: LOPERAMIDE
     Dates: start: 20220104
  10. ELOCON [Concomitant]
     Active Substance: MOMETASONE FUROATE
     Dates: start: 20220118
  11. CEPHALEXIN HYDROCHLORIDE [Concomitant]
     Active Substance: CEPHALEXIN HYDROCHLORIDE
     Dates: start: 20220209, end: 20220219
  12. ASPIRIN [Concomitant]
     Active Substance: ASPIRIN
     Dates: start: 20220217, end: 20220314
  13. PERINDOPRIL [Concomitant]
     Active Substance: PERINDOPRIL
     Dates: start: 20220217, end: 20220225
  14. PANTOPRAZOLE [Concomitant]
     Active Substance: PANTOPRAZOLE
     Dates: start: 20220128
  15. CYCLIZINE [Concomitant]
     Active Substance: CYCLIZINE
     Dates: start: 20211222
  16. TELMISARTAN [Concomitant]
     Active Substance: TELMISARTAN
     Dates: start: 20220225, end: 20220310
  17. ROSUVASTATIN [Concomitant]
     Active Substance: ROSUVASTATIN
     Dates: start: 20220224, end: 20220311
  18. PREDNISOLONE [Concomitant]
     Active Substance: PREDNISOLONE
     Dates: start: 20220421

REACTIONS (1)
  - Blood creatinine increased [Not Recovered/Not Resolved]

NARRATIVE: CASE EVENT DATE: 20220310
